FAERS Safety Report 8532973-X (Version None)
Quarter: 2012Q3

REPORT INFORMATION
  Report Type: 
  Country: None (occurrence: None)
  Receive Date: 20120724
  Receipt Date: 20120712
  Transmission Date: 20120928
  Serious: Yes (Other)
  Sender: FDA-Public Use
  Company Number: US-JNJFOC-20120707041

PATIENT
  Sex: Male
  Weight: 77.57 kg

DRUGS (4)
  1. RISPERDAL [Suspect]
     Indication: PRODUCT USED FOR UNKNOWN INDICATION
     Route: 048
     Dates: start: 20120629
  2. DILANTIN [Concomitant]
     Indication: CONVULSION
     Route: 048
  3. LIPITOR [Concomitant]
     Route: 065
  4. ZOLOFT [Suspect]
     Indication: SLEEP DISORDER
     Route: 048
     Dates: start: 20120629, end: 20120630

REACTIONS (6)
  - HUNGER [None]
  - APHAGIA [None]
  - FEELING ABNORMAL [None]
  - INSOMNIA [None]
  - VOMITING [None]
  - HALLUCINATION, AUDITORY [None]
